FAERS Safety Report 5341485-6 (Version None)
Quarter: 2007Q2

REPORT INFORMATION
  Report Type: 
  Country: None (occurrence: None)
  Receive Date: 20070530
  Receipt Date: 20070530
  Transmission Date: 20071010
  Serious: No
  Sender: FDA-Public Use
  Company Number: None

PATIENT
  Age: 35 Year
  Sex: Female
  Weight: 93.4 kg

DRUGS (3)
  1. LINEZOLID [Suspect]
     Dosage: IV Q12H
     Route: 042
     Dates: start: 20070518, end: 20070523
  2. ESCITALOPRAM [Suspect]
     Indication: DEPRESSION
     Dosage: PO DAILY
     Route: 048
     Dates: start: 20070522
  3. ESCITALOPRAM [Suspect]
     Indication: PAIN
     Dosage: PO DAILY
     Route: 048
     Dates: start: 20070522

REACTIONS (3)
  - CONFUSIONAL STATE [None]
  - HALLUCINATION [None]
  - TREMOR [None]
